FAERS Safety Report 25231902 (Version 1)
Quarter: 2025Q2

REPORT INFORMATION
  Report Type: Spontaneous
  Country: FR (occurrence: FR)
  Receive Date: 20250423
  Receipt Date: 20250423
  Transmission Date: 20250716
  Serious: Yes (Hospitalization)
  Sender: MYLAN
  Company Number: None

PATIENT
  Age: 34 Year
  Sex: Female
  Weight: 64 kg

DRUGS (20)
  1. SERTRALINE [Suspect]
     Active Substance: SERTRALINE HYDROCHLORIDE
     Indication: Product used for unknown indication
     Dates: start: 20250309, end: 20250309
  2. SERTRALINE [Suspect]
     Active Substance: SERTRALINE HYDROCHLORIDE
     Route: 048
     Dates: start: 20250309, end: 20250309
  3. SERTRALINE [Suspect]
     Active Substance: SERTRALINE HYDROCHLORIDE
     Route: 048
     Dates: start: 20250309, end: 20250309
  4. SERTRALINE [Suspect]
     Active Substance: SERTRALINE HYDROCHLORIDE
     Dates: start: 20250309, end: 20250309
  5. LAMOTRIGINE [Suspect]
     Active Substance: LAMOTRIGINE
     Indication: Product used for unknown indication
     Dates: start: 20250309, end: 20250309
  6. LAMOTRIGINE [Suspect]
     Active Substance: LAMOTRIGINE
     Route: 048
     Dates: start: 20250309, end: 20250309
  7. LAMOTRIGINE [Suspect]
     Active Substance: LAMOTRIGINE
     Route: 048
     Dates: start: 20250309, end: 20250309
  8. LAMOTRIGINE [Suspect]
     Active Substance: LAMOTRIGINE
     Dates: start: 20250309, end: 20250309
  9. TERALITHE [Suspect]
     Active Substance: LITHIUM CARBONATE
     Indication: Product used for unknown indication
     Dates: start: 20250309, end: 20250309
  10. TERALITHE [Suspect]
     Active Substance: LITHIUM CARBONATE
     Route: 048
     Dates: start: 20250309, end: 20250309
  11. TERALITHE [Suspect]
     Active Substance: LITHIUM CARBONATE
     Route: 048
     Dates: start: 20250309, end: 20250309
  12. TERALITHE [Suspect]
     Active Substance: LITHIUM CARBONATE
     Dates: start: 20250309, end: 20250309
  13. LORMETAZEPAM [Suspect]
     Active Substance: LORMETAZEPAM
     Indication: Product used for unknown indication
     Dates: start: 20250309, end: 20250309
  14. LORMETAZEPAM [Suspect]
     Active Substance: LORMETAZEPAM
     Route: 048
     Dates: start: 20250309, end: 20250309
  15. LORMETAZEPAM [Suspect]
     Active Substance: LORMETAZEPAM
     Route: 048
     Dates: start: 20250309, end: 20250309
  16. LORMETAZEPAM [Suspect]
     Active Substance: LORMETAZEPAM
     Dates: start: 20250309, end: 20250309
  17. TRANXENE [Suspect]
     Active Substance: CLORAZEPATE DIPOTASSIUM
     Indication: Product used for unknown indication
     Dates: start: 20250309, end: 20250309
  18. TRANXENE [Suspect]
     Active Substance: CLORAZEPATE DIPOTASSIUM
     Route: 048
     Dates: start: 20250309, end: 20250309
  19. TRANXENE [Suspect]
     Active Substance: CLORAZEPATE DIPOTASSIUM
     Route: 048
     Dates: start: 20250309, end: 20250309
  20. TRANXENE [Suspect]
     Active Substance: CLORAZEPATE DIPOTASSIUM
     Dates: start: 20250309, end: 20250309

REACTIONS (6)
  - Altered state of consciousness [Recovered/Resolved]
  - Hyponatraemia [Recovered/Resolved]
  - Thrombocytopenia [Recovered/Resolved]
  - Toxicity to various agents [Recovered/Resolved]
  - Bezoar [Recovered/Resolved]
  - Drug level increased [Recovered/Resolved]

NARRATIVE: CASE EVENT DATE: 20250309
